FAERS Safety Report 5523684-3 (Version None)
Quarter: 2007Q4

REPORT INFORMATION
  Report Type: 
  Country: None (occurrence: None)
  Receive Date: 20071121
  Receipt Date: 20071113
  Transmission Date: 20080405
  Serious: Yes (Other)
  Sender: FDA-Public Use
  Company Number: US-JNJFOC-20071105560

PATIENT
  Sex: Female
  Weight: 62.6 kg

DRUGS (3)
  1. ORTHO-NOVUM 7/7/7-21 [Suspect]
  2. ORTHO-NOVUM 7/7/7-21 [Suspect]
     Indication: CONTRACEPTION
  3. MULTI-VITAMIN [Concomitant]
     Route: 048

REACTIONS (5)
  - ANGIOPATHY [None]
  - EYE SWELLING [None]
  - HYPERREFLEXIA [None]
  - NAUSEA [None]
  - VISUAL DISTURBANCE [None]
